FAERS Safety Report 25004504 (Version 2)
Quarter: 2025Q1

REPORT INFORMATION
  Report Type: Spontaneous
  Country: US (occurrence: US)
  Receive Date: 20250224
  Receipt Date: 20250311
  Transmission Date: 20250409
  Serious: Yes (Other)
  Sender: BAYER HEALTHCARE PHARMACEUTICALS INC.
  Company Number: US-BAYER-2025A024894

PATIENT
  Age: 29 Year
  Sex: Female

DRUGS (1)
  1. MIRENA [Suspect]
     Active Substance: LEVONORGESTREL
     Indication: Contraception
     Dosage: 20?G/DAY
     Route: 015
     Dates: start: 20191124

REACTIONS (5)
  - Pregnancy with contraceptive device [Recovered/Resolved]
  - Embedded device [Not Recovered/Not Resolved]
  - Abortion spontaneous [None]
  - Drug ineffective [None]
  - Device difficult to use [None]

NARRATIVE: CASE EVENT DATE: 20241014
